FAERS Safety Report 8339577 (Version 3)
Quarter: 2014Q1

REPORT INFORMATION
  Report Type: Spontaneous
  Country: US (occurrence: US)
  Receive Date: 20120117
  Receipt Date: 20140109
  Transmission Date: 20141002
  Serious: Yes (Hospitalization, Disabling)
  Sender: FDA-Public Use
  Company Number: US-BAYER-2012-004143

PATIENT
  Age: 16 Year
  Sex: Female
  Weight: 52.15 kg

DRUGS (2)
  1. OCELLA [Suspect]
     Indication: ACNE
     Dosage: UNK
     Dates: start: 2006
  2. MAXAIR [Concomitant]
     Route: 048

REACTIONS (6)
  - Gallbladder injury [None]
  - Cholecystitis chronic [None]
  - Pain [None]
  - Injury [None]
  - Deformity [None]
  - Cardiac disorder [None]
